FAERS Safety Report 9516826 (Version 2)
Quarter: 2013Q3

REPORT INFORMATION
  Report Type: Report from Study
  Country: US (occurrence: US)
  Receive Date: 20130911
  Receipt Date: 20130911
  Transmission Date: 20140515
  Serious: Yes (Hospitalization, Other)
  Sender: FDA-Public Use
  Company Number: US-ABBOTT-13P-163-1139828-00

PATIENT
  Age: 65 Year
  Sex: Female

DRUGS (3)
  1. HUMIRA [Suspect]
     Indication: CROHN^S DISEASE
     Dosage: 160MG ONE TIME
     Dates: start: 20130726, end: 20130726
  2. HUMIRA [Suspect]
     Dosage: ONE TIME DOSE
     Dates: start: 20130809, end: 20130809
  3. TPN [Concomitant]
     Indication: PRODUCT USED FOR UNKNOWN INDICATION
     Dates: start: 201305

REACTIONS (8)
  - Device occlusion [Recovered/Resolved with Sequelae]
  - Malaise [Unknown]
  - Thrombosis [Not Recovered/Not Resolved]
  - Local swelling [Recovered/Resolved]
  - Localised oedema [Recovered/Resolved]
  - Pyrexia [Not Recovered/Not Resolved]
  - Infection [Not Recovered/Not Resolved]
  - Fistula [Not Recovered/Not Resolved]
